FAERS Safety Report 9683903 (Version 1)
Quarter: 2013Q4

REPORT INFORMATION
  Report Type: Spontaneous
  Country: US (occurrence: US)
  Receive Date: 20131112
  Receipt Date: 20131112
  Transmission Date: 20140711
  Serious: No
  Sender: FDA-Public Use
  Company Number: US-MALLINCKRODT-T201304259

PATIENT
  Sex: Female

DRUGS (1)
  1. FENTANYL TRANSDERMAL SYSTEM [Suspect]
     Indication: PRODUCT USED FOR UNKNOWN INDICATION
     Dosage: 25 UG/HR, UNK
     Route: 062
     Dates: start: 20130828, end: 20130828

REACTIONS (1)
  - Sinus congestion [Not Recovered/Not Resolved]
